FAERS Safety Report 12431434 (Version 2)
Quarter: 2016Q2

REPORT INFORMATION
  Report Type: Report from Study
  Country: US (occurrence: US)
  Receive Date: 20160603
  Receipt Date: 20160606
  Transmission Date: 20160815
  Serious: Yes (Other)
  Sender: FDA-Public Use
  Company Number: US-ROCHE-1766345

PATIENT
  Sex: Male
  Weight: 83.08 kg

DRUGS (7)
  1. METOPROLOL. [Concomitant]
     Active Substance: METOPROLOL
     Indication: HYPERTENSION
  2. ESBRIET [Suspect]
     Active Substance: PIRFENIDONE
     Indication: IDIOPATHIC PULMONARY FIBROSIS
     Dosage: 3 PILLS 3 X A DAY
     Route: 048
     Dates: start: 20160301, end: 20160507
  3. ULORIC [Concomitant]
     Active Substance: FEBUXOSTAT
     Indication: GOUT
  4. PEPCID [Concomitant]
     Active Substance: FAMOTIDINE
  5. FUROSEMIDE. [Concomitant]
     Active Substance: FUROSEMIDE
     Indication: OEDEMA
  6. PREDNISONE. [Concomitant]
     Active Substance: PREDNISONE
     Indication: POLYMYALGIA RHEUMATICA
     Route: 065
  7. FOLIC ACID. [Concomitant]
     Active Substance: FOLIC ACID

REACTIONS (10)
  - Dizziness [Recovering/Resolving]
  - Abdominal distension [Unknown]
  - Constipation [Unknown]
  - Gait disturbance [Unknown]
  - Oedema [Recovering/Resolving]
  - Vision blurred [Unknown]
  - Nausea [Recovering/Resolving]
  - Gait disturbance [Recovering/Resolving]
  - Renal failure [Unknown]
  - Dizziness [Unknown]
